FAERS Safety Report 24916901 (Version 5)
Quarter: 2025Q1

REPORT INFORMATION
  Report Type: Spontaneous
  Country: US (occurrence: US)
  Receive Date: 20250203
  Receipt Date: 20250327
  Transmission Date: 20250409
  Serious: No
  Sender: PFIZER
  Company Number: US-PFIZER INC-202500021115

PATIENT
  Age: 13 Year
  Sex: Female

DRUGS (1)
  1. GENOTROPIN [Suspect]
     Active Substance: SOMATROPIN
     Dosage: 1.8 MG, DAILY

REACTIONS (5)
  - Injection site pain [Unknown]
  - Needle issue [Unknown]
  - Device leakage [Unknown]
  - Wrong technique in device usage process [Unknown]
  - Liquid product physical issue [Unknown]
